FAERS Safety Report 8953760 (Version 1)
Quarter: 2012Q4

REPORT INFORMATION
  Report Type: Report from Study
  Country: US (occurrence: US)
  Receive Date: 20121206
  Receipt Date: 20121206
  Transmission Date: 20130627
  Serious: Yes (Other)
  Sender: FDA-Public Use
  Company Number: US-PURDUE-USA-2012-0096556

PATIENT
  Age: 62 None
  Sex: Female

DRUGS (1)
  1. OXYCONTIN (NDA 22-272) [Suspect]
     Indication: PRODUCT USED FOR UNKNOWN INDICATION
     Dosage: 160 mg, bid
     Route: 048

REACTIONS (3)
  - Pneumonia [Unknown]
  - Fall [Recovered/Resolved]
  - Rib fracture [Unknown]
